FAERS Safety Report 6624956-1 (Version None)
Quarter: 2010Q1

REPORT INFORMATION
  Report Type: 
  Country: None (occurrence: None)
  Receive Date: 20100310
  Receipt Date: 20090918
  Transmission Date: 20100710
  Serious: Yes (Hospitalization)
  Sender: FDA-Public Use
  Company Number: US-BIOGENIDEC-2009BI029980

PATIENT
  Age: 29 Year
  Sex: Male
  Weight: 57 kg

DRUGS (3)
  1. AVONEX [Suspect]
     Indication: MULTIPLE SCLEROSIS
     Route: 030
     Dates: start: 19970101, end: 20030101
  2. AVONEX [Suspect]
     Route: 030
     Dates: start: 20030101
  3. CHEMOTHERAPY (NOS) [Concomitant]
     Indication: MULTIPLE SCLEROSIS

REACTIONS (2)
  - ATAXIA [None]
  - MULTIPLE SCLEROSIS RELAPSE [None]
